FAERS Safety Report 5277900-6 (Version None)
Quarter: 2007Q1

REPORT INFORMATION
  Report Type: 
  Country: None (occurrence: None)
  Receive Date: 20070321
  Receipt Date: 20070309
  Transmission Date: 20070707
  Serious: Yes (Death)
  Sender: FDA-Public Use
  Company Number: 238069

PATIENT
  Age: 60 Year
  Sex: Male

DRUGS (10)
  1. AVASTIN [Suspect]
     Indication: LUNG NEOPLASM MALIGNANT
     Dosage: 10 MG/KG, INTRAVENOUS
     Route: 042
     Dates: start: 20070118
  2. CARBOPLATIN [Concomitant]
  3. TAXOL [Concomitant]
  4. AMBIEN [Concomitant]
  5. ASPIRIN [Concomitant]
  6. COREG [Concomitant]
  7. DIGOXIN [Concomitant]
  8. LOVASTATIN [Concomitant]
  9. TARAXACUM (TARAXACUM) [Concomitant]
  10. HYDROCHLOROTHIAZIDE [Concomitant]

REACTIONS (1)
  - DEATH [None]
